FAERS Safety Report 25190344 (Version 2)
Quarter: 2025Q2

REPORT INFORMATION
  Report Type: Spontaneous
  Country: CN (occurrence: CN)
  Receive Date: 20250411
  Receipt Date: 20250506
  Transmission Date: 20250716
  Serious: No
  Sender: JOHNSON AND JOHNSON
  Company Number: CN-JNJFOC-20250387600

PATIENT

DRUGS (1)
  1. GUSELKUMAB [Suspect]
     Active Substance: GUSELKUMAB
     Indication: Psoriasis
     Route: 065

REACTIONS (2)
  - Accidental exposure to product [Unknown]
  - Needle issue [Unknown]

NARRATIVE: CASE EVENT DATE: 20250306
